FAERS Safety Report 11382087 (Version 1)
Quarter: 2015Q3

REPORT INFORMATION
  Report Type: Spontaneous
  Country: US (occurrence: US)
  Receive Date: 20150811
  Receipt Date: 20150811
  Transmission Date: 20151125
  Serious: No
  Sender: FDA-Public Use
  Company Number: US-ELI_LILLY_AND_COMPANY-US200912004134

PATIENT

DRUGS (2)
  1. INTERFERON [Concomitant]
     Active Substance: INTERFERON
     Dosage: UNK, UNKNOWN
     Route: 065
  2. CIALIS [Suspect]
     Active Substance: TADALAFIL
     Dosage: UNK, AS NEEDED
     Route: 065

REACTIONS (5)
  - Cough [Not Recovered/Not Resolved]
  - Lung infection [Not Recovered/Not Resolved]
  - Immunosuppression [Not Recovered/Not Resolved]
  - Nasopharyngitis [Not Recovered/Not Resolved]
  - Seasonal allergy [Unknown]
